FAERS Safety Report 7878634-1 (Version None)
Quarter: 2011Q4

REPORT INFORMATION
  Report Type: 
  Country: None (occurrence: None)
  Receive Date: 20111018
  Receipt Date: 20110203
  Transmission Date: 20120403
  Serious: Yes (Hospitalization)
  Sender: FDA-Public Use
  Company Number: 2011P1004277

PATIENT
  Age: 60 Year
  Sex: Male
  Weight: 95.2554 kg

DRUGS (14)
  1. INDOMETHACIN [Concomitant]
  2. ALLOPURINOL [Concomitant]
  3. NORTRIPTYLINE HCL [Concomitant]
  4. OXYCODONE HCL AND ACETAMINOPHEN [Concomitant]
  5. TRILIPIX [Concomitant]
  6. LIPITOR [Concomitant]
  7. FOSAMAX [Concomitant]
  8. ASPIRIN [Concomitant]
  9. FENTANYL-75 [Suspect]
     Indication: ARTHRITIS
     Dosage: 1 PATCH;Q72H;TDER 75MCG
     Route: 062
     Dates: start: 20101201
  10. FENTANYL-75 [Suspect]
     Indication: ANKYLOSING SPONDYLITIS
     Dosage: 1 PATCH;Q72H;TDER 75MCG
     Route: 062
     Dates: start: 20101201
  11. AMBIEN [Concomitant]
  12. AMLODIPINE BESYLATE AND BENAZEPRIL HCL [Concomitant]
  13. PLAVIX [Concomitant]
  14. TAMSULOSIN HCL [Concomitant]

REACTIONS (2)
  - PRODUCT SUBSTITUTION ISSUE [None]
  - TACHYCARDIA [None]
